FAERS Safety Report 6296816-X (Version None)
Quarter: 2009Q3

REPORT INFORMATION
  Report Type: 
  Country: None (occurrence: None)
  Receive Date: 20090804
  Receipt Date: 20090724
  Transmission Date: 20100115
  Serious: Yes (Other)
  Sender: FDA-Public Use
  Company Number: PHHY2009BR30982

PATIENT
  Age: 79 Year
  Sex: Female

DRUGS (7)
  1. ACLASTA [Suspect]
     Indication: OSTEOPOROSIS
     Dosage: 5 MG/100 ML
     Route: 042
     Dates: start: 20090701
  2. NAPRIX [Concomitant]
     Indication: HYPERTENSION
     Dosage: 2.5 MG, (1 TABLET MORNING AND NIGHT FOR MORE THAN 10 YEARS)
     Route: 048
  3. CALTREN [Concomitant]
     Indication: HYPERTENSION
     Dosage: 20 MG, (1TABLET MORNING AND NIGHT)
     Route: 048
     Dates: start: 20080701
  4. LASIX [Concomitant]
     Indication: HYPERTENSION
     Dosage: 40 MG, (HALF TABLET PER DAY)
     Route: 048
     Dates: start: 20090723
  5. LASIX [Concomitant]
     Dosage: INCREASED TO ONE TABLET A DAY FOR MORE THAN A YEAR
     Route: 048
  6. GABAPENTIN [Concomitant]
     Indication: NEURITIS
     Dosage: 600 MG,(HALF TABLET IN MORNING AND NIGHT)
     Route: 048
     Dates: start: 20030101
  7. VITAMIN B 1-6-12 [Concomitant]
     Indication: NEURITIS
     Dosage: ONE TABLET PER DAY
     Route: 048
     Dates: start: 20030101

REACTIONS (2)
  - FLUID RETENTION [None]
  - OEDEMA PERIPHERAL [None]
